FAERS Safety Report 17484341 (Version 2)
Quarter: 2020Q2

REPORT INFORMATION
  Report Type: Spontaneous
  Country: GB (occurrence: GB)
  Receive Date: 20200302
  Receipt Date: 20200407
  Transmission Date: 20200713
  Serious: Yes (Hospitalization, Other)
  Sender: FDA-Public Use
  Company Number: GB-PFIZER INC-2020085977

PATIENT
  Age: 40 Year
  Sex: Male
  Weight: 113 kg

DRUGS (5)
  1. GRANOCYTE [Suspect]
     Active Substance: LENOGRASTIM
     Dosage: 1157 UG, UNK
     Route: 058
     Dates: start: 20200111, end: 20200115
  2. PLERIXAFOR [Suspect]
     Active Substance: PLERIXAFOR
     Dosage: 24 MG, UNK
     Route: 058
     Dates: start: 20200115, end: 20200115
  3. MIRTAZAPINE. [Concomitant]
     Active Substance: MIRTAZAPINE
     Indication: DEPRESSION
     Dosage: 30 MG, ONCE DAILY (AT NIGHT, OVER ONE YEAR USE)
  4. EPANUTIN [Suspect]
     Active Substance: PHENYTOIN SODIUM
     Indication: EPILEPSY
     Dosage: 700 MG, ONCE A DAY
     Dates: start: 19840101
  5. PHENOBARBITAL. [Concomitant]
     Active Substance: PHENOBARBITAL
     Indication: EPILEPSY
     Dosage: 240 MG, ONCE DAILY
     Dates: start: 19840101

REACTIONS (9)
  - Staphylococcal infection [Recovered/Resolved]
  - Pericardial effusion [Recovering/Resolving]
  - Malaise [Recovering/Resolving]
  - C-reactive protein increased [Recovering/Resolving]
  - Rash pustular [Recovering/Resolving]
  - Splenic infarction [Recovering/Resolving]
  - Pyrexia [Recovered/Resolved]
  - Abdominal distension [Recovering/Resolving]
  - Pleural effusion [Recovering/Resolving]

NARRATIVE: CASE EVENT DATE: 20200119
